FAERS Safety Report 9547523 (Version 1)
Quarter: 2013Q3

REPORT INFORMATION
  Report Type: Spontaneous
  Country: FR (occurrence: FR)
  Receive Date: 20130924
  Receipt Date: 20130924
  Transmission Date: 20140515
  Serious: Yes (Hospitalization)
  Sender: FDA-Public Use
  Company Number: FR-JNJFOC-20130910513

PATIENT
  Age: 37 Year
  Sex: Female

DRUGS (11)
  1. SIMPONI [Suspect]
     Indication: PRODUCT USED FOR UNKNOWN INDICATION
     Route: 058
     Dates: start: 20130529
  2. SIMPONI [Suspect]
     Indication: PRODUCT USED FOR UNKNOWN INDICATION
     Route: 058
     Dates: start: 201301
  3. URSOLVAN [Concomitant]
     Route: 065
     Dates: start: 201301
  4. FIVASA [Concomitant]
     Route: 065
     Dates: start: 201301
  5. ZELITREX [Concomitant]
     Route: 065
     Dates: start: 201301
  6. DUROGESIC [Concomitant]
     Route: 065
     Dates: start: 201301
  7. ACTISKENAN [Concomitant]
     Route: 065
     Dates: start: 201301
  8. DOLIPRANE [Concomitant]
     Route: 065
     Dates: start: 201301
  9. SEROPLEX [Concomitant]
     Route: 065
     Dates: start: 201301
  10. OGAST [Concomitant]
     Route: 065
     Dates: start: 201301
  11. MIRENA [Concomitant]
     Route: 065
     Dates: start: 201301

REACTIONS (1)
  - Herpes zoster [Recovering/Resolving]
